FAERS Safety Report 5353820-3 (Version None)
Quarter: 2007Q2

REPORT INFORMATION
  Report Type: 
  Country: None (occurrence: None)
  Receive Date: 20070521
  Receipt Date: 20070201
  Transmission Date: 20071010
  Serious: No
  Sender: FDA-Public Use
  Company Number: WAES 0702USA00459

PATIENT
  Age: 57 Year
  Sex: Male

DRUGS (4)
  1. JANUVIA [Suspect]
     Indication: DIABETES MELLITUS INSULIN-DEPENDENT
     Dosage: 50 MG DAILY PO
     Route: 048
     Dates: start: 20070108, end: 20070201
  2. GLUCOPHAGE [Concomitant]
  3. VYTORIN [Concomitant]
  4. ASPIRIN [Concomitant]

REACTIONS (2)
  - PRURITUS [None]
  - RASH GENERALISED [None]
